FAERS Safety Report 9062497 (Version 2)
Quarter: 2013Q2

REPORT INFORMATION
  Report Type: Spontaneous
  Country: US (occurrence: US)
  Receive Date: 20130128
  Receipt Date: 20130531
  Transmission Date: 20140414
  Serious: Yes (Other)
  Sender: FDA-Public Use
  Company Number: US-BRISTOL-MYERS SQUIBB COMPANY-17297656

PATIENT
  Age: 23 Year
  Sex: Female
  Weight: 62.58 kg

DRUGS (4)
  1. KENALOG-40 INJ [Suspect]
     Indication: RADICULITIS CERVICAL
     Route: 008
     Dates: start: 20101101
  2. CELEBREX [Concomitant]
     Dosage: CAPSULE
     Route: 048
  3. SOMA [Concomitant]
     Dosage: TABLET
     Route: 048
  4. TRAMADOL [Concomitant]

REACTIONS (3)
  - Paralysis [Unknown]
  - Neck pain [Unknown]
  - Off label use [Unknown]
